FAERS Safety Report 25592369 (Version 1)
Quarter: 2025Q3

REPORT INFORMATION
  Report Type: Spontaneous
  Country: EU (occurrence: EU)
  Receive Date: 20250722
  Receipt Date: 20250722
  Transmission Date: 20251021
  Serious: Yes (Other)
  Sender: TEVA
  Company Number: EU-TEVA-VS-3353259

PATIENT

DRUGS (2)
  1. IBUPROFEN [Suspect]
     Active Substance: IBUPROFEN
     Indication: Ankylosing spondylitis
     Route: 064
  2. INDOMETHACIN [Suspect]
     Active Substance: INDOMETHACIN
     Indication: Ankylosing spondylitis
     Route: 064

REACTIONS (3)
  - Oligohydramnios [Recovered/Resolved]
  - Embryo-foetal toxicity [Recovered/Resolved]
  - Foetal exposure during pregnancy [Unknown]
